FAERS Safety Report 10517506 (Version 2)
Quarter: 2014Q4

REPORT INFORMATION
  Report Type: Spontaneous
  Country: US (occurrence: US)
  Receive Date: 20141014
  Receipt Date: 20141014
  Transmission Date: 20150528
  Serious: Yes (Hospitalization)
  Sender: FDA-Public Use
  Company Number: US-ASTRAZENECA-2007UW02252

PATIENT
  Age: 51 Year
  Sex: Female
  Weight: 101.8 kg

DRUGS (29)
  1. ZYPREXA [Concomitant]
     Active Substance: OLANZAPINE
     Dates: start: 20070201
  2. ZOLOFT [Concomitant]
     Active Substance: SERTRALINE HYDROCHLORIDE
  3. CELEXA [Concomitant]
     Active Substance: CITALOPRAM HYDROBROMIDE
  4. LEXAPRO [Concomitant]
     Active Substance: ESCITALOPRAM OXALATE
  5. ELAVIL [Concomitant]
     Active Substance: AMITRIPTYLINE HYDROCHLORIDE
  6. TRILAFON [Concomitant]
     Active Substance: PERPHENAZINE
  7. BENADRYL [Concomitant]
     Active Substance: DIPHENHYDRAMINE HYDROCHLORIDE
  8. BUSPAR [Concomitant]
     Active Substance: BUSPIRONE HYDROCHLORIDE
  9. REMERON [Concomitant]
     Active Substance: MIRTAZAPINE
  10. SEROQUEL [Suspect]
     Active Substance: QUETIAPINE FUMARATE
     Indication: HALLUCINATION
     Dosage: HS
     Route: 048
     Dates: start: 20050325, end: 20061005
  11. SEROQUEL [Suspect]
     Active Substance: QUETIAPINE FUMARATE
     Indication: HALLUCINATION
     Dosage: HS
     Route: 048
     Dates: start: 2004
  12. PAXIL [Concomitant]
     Active Substance: PAROXETINE HYDROCHLORIDE
     Indication: DEPRESSION
     Dates: start: 20060703
  13. DEPAKOTE [Concomitant]
     Active Substance: DIVALPROEX SODIUM
     Indication: AFFECTIVE DISORDER
     Dates: start: 20060703
  14. THORAZINE [Concomitant]
     Active Substance: CHLORPROMAZINE
  15. LITHIUM [Concomitant]
     Active Substance: LITHIUM CARBONATE
  16. EFFEXOR [Concomitant]
     Active Substance: VENLAFAXINE HYDROCHLORIDE
  17. SEROQUEL [Suspect]
     Active Substance: QUETIAPINE FUMARATE
     Indication: BIPOLAR DISORDER
     Dosage: HS
     Route: 048
     Dates: start: 20050325, end: 20061005
  18. LAMOTRIGINE. [Concomitant]
     Active Substance: LAMOTRIGINE
  19. SEROQUEL [Suspect]
     Active Substance: QUETIAPINE FUMARATE
     Indication: HYPOMANIA
     Dosage: HS
     Route: 048
     Dates: start: 2004
  20. DEPAKOTE [Concomitant]
     Active Substance: DIVALPROEX SODIUM
  21. LORAZEPAM. [Concomitant]
     Active Substance: LORAZEPAM
  22. SEROQUEL [Suspect]
     Active Substance: QUETIAPINE FUMARATE
     Indication: HYPOMANIA
     Dosage: HS
     Route: 048
     Dates: start: 20050325, end: 20061005
  23. SEROQUEL [Suspect]
     Active Substance: QUETIAPINE FUMARATE
     Indication: BIPOLAR DISORDER
     Dosage: HS
     Route: 048
     Dates: start: 2004
  24. PROZAC [Concomitant]
     Active Substance: FLUOXETINE HYDROCHLORIDE
  25. NEURONTIN [Concomitant]
     Active Substance: GABAPENTIN
  26. WELLBUTRIN [Concomitant]
     Active Substance: BUPROPION HYDROCHLORIDE
  27. GEODON [Concomitant]
     Active Substance: ZIPRASIDONE HYDROCHLORIDE\ZIPRASIDONE MESYLATE
  28. AMBIEN [Concomitant]
     Active Substance: ZOLPIDEM TARTRATE
     Indication: INSOMNIA
     Dates: start: 20060703
  29. PAMELOR [Concomitant]
     Active Substance: NORTRIPTYLINE HYDROCHLORIDE

REACTIONS (4)
  - Anaemia [None]
  - Neuroleptic malignant syndrome [Recovered/Resolved]
  - Serotonin syndrome [Recovered/Resolved]
  - Seizure [None]

NARRATIVE: CASE EVENT DATE: 200610
